FAERS Safety Report 10881428 (Version 4)
Quarter: 2015Q4

REPORT INFORMATION
  Report Type: Spontaneous
  Country: US (occurrence: US)
  Receive Date: 20150303
  Receipt Date: 20151118
  Transmission Date: 20160304
  Serious: Yes (Death, Other)
  Sender: FDA-Public Use
  Company Number: US-JNJFOC-20150213899

PATIENT

DRUGS (8)
  1. RITUXIMAB [Suspect]
     Active Substance: RITUXIMAB
     Indication: ACUTE LYMPHOCYTIC LEUKAEMIA
     Route: 065
  2. CYTARABINE. [Suspect]
     Active Substance: CYTARABINE
     Indication: ACUTE LYMPHOCYTIC LEUKAEMIA
     Route: 065
  3. VINCRISTINE [Suspect]
     Active Substance: VINCRISTINE
     Indication: ACUTE LYMPHOCYTIC LEUKAEMIA
     Route: 042
  4. DEXAMETHASONE. [Suspect]
     Active Substance: DEXAMETHASONE
     Indication: ACUTE LYMPHOCYTIC LEUKAEMIA
     Route: 065
  5. METHOTREXATE [Suspect]
     Active Substance: METHOTREXATE
     Indication: ACUTE LYMPHOCYTIC LEUKAEMIA
     Route: 065
  6. DOXORUBICIN [Suspect]
     Active Substance: DOXORUBICIN
     Indication: ACUTE LYMPHOCYTIC LEUKAEMIA
     Route: 042
  7. CYCLOPHOSPHAMIDE. [Suspect]
     Active Substance: CYCLOPHOSPHAMIDE
     Indication: ACUTE LYMPHOCYTIC LEUKAEMIA
     Route: 042
  8. PONATINIB [Suspect]
     Active Substance: PONATINIB
     Indication: ACUTE LYMPHOCYTIC LEUKAEMIA
     Route: 048

REACTIONS (26)
  - Aspartate aminotransferase increased [Unknown]
  - Visual impairment [Unknown]
  - Lipase increased [Unknown]
  - Product use issue [Unknown]
  - Pancreatitis [Unknown]
  - Pericardial effusion [Unknown]
  - Constipation [Unknown]
  - Haemorrhage [Unknown]
  - Rash [Unknown]
  - Blood bilirubin increased [Unknown]
  - Hypertension [Unknown]
  - Mucosal inflammation [Unknown]
  - Renal injury [Unknown]
  - Amylase increased [Unknown]
  - Dry skin [Unknown]
  - Infection [Unknown]
  - Vomiting [Unknown]
  - Diarrhoea [Unknown]
  - Pleural effusion [Unknown]
  - Nausea [Unknown]
  - Decreased appetite [Unknown]
  - Off label use [Unknown]
  - Abdominal pain [Unknown]
  - Myocardial infarction [Fatal]
  - Pulmonary embolism [Unknown]
  - Alanine aminotransferase increased [Unknown]
